FAERS Safety Report 6902020-1 (Version None)
Quarter: 2010Q3

REPORT INFORMATION
  Report Type: 
  Country: None (occurrence: None)
  Receive Date: 20100803
  Receipt Date: 20081002
  Transmission Date: 20110219
  Serious: No
  Sender: FDA-Public Use
  Company Number: US-PFIZER INC-2008033782

PATIENT
  Sex: Female
  Weight: 59.1 kg

DRUGS (9)
  1. LYRICA [Suspect]
     Indication: NEUROPATHY PERIPHERAL
     Dates: start: 20080201, end: 20080409
  2. BENICAR [Concomitant]
  3. DOCUSATE [Concomitant]
  4. AMITIZA [Concomitant]
  5. LISINOPRIL [Concomitant]
  6. LASIX [Concomitant]
  7. ACETYLSALICYLIC ACID SRT [Concomitant]
  8. LUNESTA [Concomitant]
     Indication: INSOMNIA
  9. SPIRIVA [Concomitant]

REACTIONS (5)
  - INSOMNIA [None]
  - JOINT SWELLING [None]
  - NEURALGIA [None]
  - OEDEMA PERIPHERAL [None]
  - RESTLESSNESS [None]
